FAERS Safety Report 10544668 (Version 1)
Quarter: 2014Q4

REPORT INFORMATION
  Report Type: Spontaneous
  Country: US (occurrence: None)
  Receive Date: 20141014
  Receipt Date: 20141014
  Transmission Date: 20150529
  Serious: No
  Sender: FDA-Public Use
  Company Number: SP08029

PATIENT
  Age: 68 Year
  Sex: Male
  Weight: 77.11 kg

DRUGS (8)
  1. FULYZAQ [Suspect]
     Active Substance: CROFELEMER
     Indication: DIARRHOEA
     Route: 048
     Dates: start: 201406, end: 201407
  2. LYRICA [Concomitant]
     Active Substance: PREGABALIN
  3. VIREAD [Concomitant]
     Active Substance: TENOFOVIR DISOPROXIL FUMARATE
  4. KALETRA [Concomitant]
     Active Substance: LOPINAVIR\RITONAVIR
  5. EPZICOM [Concomitant]
     Active Substance: ABACAVIR SULFATE\LAMIVUDINE
  6. METOPROLOL [Concomitant]
     Active Substance: METOPROLOL
  7. ISENTRESS [Concomitant]
     Active Substance: RALTEGRAVIR POTASSIUM
  8. LISINOPRIL. [Concomitant]
     Active Substance: LISINOPRIL

REACTIONS (2)
  - Medication residue present [None]
  - Drug ineffective [None]

NARRATIVE: CASE EVENT DATE: 201406
